FAERS Safety Report 8876468 (Version 1)
Quarter: 2012Q4

REPORT INFORMATION
  Report Type: 
  Country: GB (occurrence: GB)
  Receive Date: 20121023
  Receipt Date: 20121023
  Transmission Date: 20130627
  Serious: Yes (Death)
  Sender: FDA-Public Use
  Company Number: GB-MERCK-1210GBR008470

PATIENT
  Age: 60 Year
  Sex: Female

DRUGS (2)
  1. CASPOFUNGIN ACETATE [Suspect]
     Indication: ASPERGILLOSIS
     Route: 042
  2. VORICONAZOLE [Suspect]
     Indication: ASPERGILLOSIS

REACTIONS (1)
  - Drug ineffective [Fatal]
